FAERS Safety Report 25808187 (Version 2)
Quarter: 2025Q3

REPORT INFORMATION
  Report Type: Spontaneous
  Country: AU (occurrence: AU)
  Receive Date: 20250916
  Receipt Date: 20250917
  Transmission Date: 20251020
  Serious: Yes (Death, Life-Threatening)
  Sender: PFIZER
  Company Number: AU-PFIZER INC-PV202500110726

PATIENT
  Age: 83 Year

DRUGS (1)
  1. ELREXFIO [Suspect]
     Active Substance: ELRANATAMAB-BCMM
     Route: 058

REACTIONS (1)
  - Death [Fatal]
